FAERS Safety Report 18614909 (Version 8)
Quarter: 2022Q3

REPORT INFORMATION
  Report Type: Report from Study
  Country: US (occurrence: US)
  Receive Date: 20201214
  Receipt Date: 20220909
  Transmission Date: 20221026
  Serious: Yes (Hospitalization, Other)
  Sender: FDA-Public Use
  Company Number: US-TAKEDA-US201933544

PATIENT
  Sex: Female

DRUGS (4)
  1. HUMAN IMMUNOGLOBULIN G [Suspect]
     Active Substance: HUMAN IMMUNOGLOBULIN G
     Indication: Primary immunodeficiency syndrome
     Dosage: UNK
     Route: 042
  2. HUMAN IMMUNOGLOBULIN G [Suspect]
     Active Substance: HUMAN IMMUNOGLOBULIN G
     Indication: Immunodeficiency common variable
  3. GAMMAGARD S/D [Suspect]
     Active Substance: HUMAN IMMUNOGLOBULIN G
     Indication: Primary immunodeficiency syndrome
     Dosage: UNK
     Route: 065
  4. GAMMAGARD S/D [Suspect]
     Active Substance: HUMAN IMMUNOGLOBULIN G
     Indication: Primary immunodeficiency syndrome
     Dosage: UNK
     Route: 065

REACTIONS (14)
  - Malignant melanoma [Unknown]
  - Tibia fracture [Unknown]
  - Metastatic malignant melanoma [Unknown]
  - Clostridium difficile infection [Recovered/Resolved]
  - Skin cancer [Recovering/Resolving]
  - Lymphadenopathy [Unknown]
  - Muscle spasms [Unknown]
  - Back pain [Unknown]
  - Flushing [Unknown]
  - Hypersensitivity [Unknown]
  - Neck pain [Unknown]
  - Myalgia [Unknown]
  - Renal function test abnormal [Unknown]
  - Weight decreased [Unknown]
